FAERS Safety Report 4538044-1 (Version None)
Quarter: 2004Q4

REPORT INFORMATION
  Report Type: 
  Country: None (occurrence: None)
  Receive Date: 20041221
  Receipt Date: 20041208
  Transmission Date: 20050328
  Serious: Yes (Hospitalization, Other)
  Sender: FDA-Public Use
  Company Number: 2004106924

PATIENT
  Sex: Female

DRUGS (3)
  1. CELEBREX [Suspect]
     Indication: PAIN
     Dosage: 200 MG (200 MG, 1 IN 1 D), ORAL
     Route: 048
     Dates: start: 20010101
  2. ALL OTHER NON-THERAPEUTIC PRODUCTS (ALL OTHER NON-THERAPEUTIC PRODUCTS [Suspect]
     Indication: ILL-DEFINED DISORDER
     Dosage: ORAL
     Route: 048
     Dates: start: 20010101, end: 20010101
  3. WARFARIN SODIUM [Concomitant]

REACTIONS (8)
  - CARDIAC OPERATION [None]
  - FALL [None]
  - HAEMATEMESIS [None]
  - POLLAKIURIA [None]
  - SPINAL FRACTURE [None]
  - THERAPY NON-RESPONDER [None]
  - THROAT IRRITATION [None]
  - URINARY TRACT INFECTION [None]
